FAERS Safety Report 4960456-2 (Version None)
Quarter: 2006Q2

REPORT INFORMATION
  Report Type: 
  Country: None (occurrence: None)
  Receive Date: 20060403
  Receipt Date: 20041029
  Transmission Date: 20061013
  Serious: Yes (Other)
  Sender: FDA-Public Use
  Company Number: JP-GLAXOSMITHKLINE-B0350191A

PATIENT
  Age: 54 Year
  Sex: Male

DRUGS (14)
  1. EPIVIR [Suspect]
     Indication: HIV INFECTION
     Dosage: 150MG TWICE PER DAY
     Route: 048
     Dates: start: 20010314
  2. ZERIT [Suspect]
     Indication: HIV INFECTION
     Dosage: 80MG PER DAY
     Route: 048
     Dates: start: 20010314, end: 20040421
  3. VIRACEPT [Suspect]
     Indication: HIV INFECTION
     Route: 048
     Dates: start: 20010314, end: 20040929
  4. ZIAGEN [Suspect]
     Indication: HIV INFECTION
     Dosage: 300MG TWICE PER DAY
     Route: 048
     Dates: start: 20040422
  5. PURSENNID [Concomitant]
     Indication: CONSTIPATION
     Dosage: 24MG PER DAY
     Route: 048
     Dates: start: 20030417, end: 20030709
  6. PURSENNID [Concomitant]
     Dosage: 12MG PER DAY
     Route: 048
     Dates: start: 20031009
  7. GLIBENCLAMIDE [Concomitant]
     Indication: DIABETES MELLITUS
     Dates: start: 20020509
  8. REYATAZ [Concomitant]
     Indication: HIV INFECTION
     Route: 048
     Dates: start: 20040930
  9. NOVOLIN [Concomitant]
     Indication: DIABETES MELLITUS
     Route: 058
     Dates: start: 20040401, end: 20041027
  10. INTRON A [Concomitant]
     Indication: HEPATITIS C
     Route: 042
     Dates: start: 20050308, end: 20050322
  11. REBETOL [Concomitant]
     Indication: HEPATITIS C
     Dosage: 400MG PER DAY
     Dates: start: 20050308, end: 20050322
  12. EUGLOCON [Concomitant]
     Indication: DIABETES MELLITUS
     Dosage: 5MG PER DAY
     Route: 048
     Dates: start: 20030401
  13. VOGLIBOSE [Concomitant]
     Dates: start: 20040814
  14. INSULIN [Concomitant]

REACTIONS (7)
  - ALANINE AMINOTRANSFERASE INCREASED [None]
  - ASPARTATE AMINOTRANSFERASE INCREASED [None]
  - DIABETES MELLITUS [None]
  - FACIAL WASTING [None]
  - GAMMA-GLUTAMYLTRANSFERASE INCREASED [None]
  - HEPATITIS C [None]
  - PLATELET COUNT DECREASED [None]
